FAERS Safety Report 11114775 (Version 1)
Quarter: 2015Q2

REPORT INFORMATION
  Report Type: Spontaneous
  Country: DE (occurrence: None)
  Receive Date: 20150513
  Receipt Date: 20150513
  Transmission Date: 20150821
  Serious: Yes (Hospitalization)
  Sender: FDA-Public Use
  Company Number: DE-H14001-15-00669

PATIENT
  Age: 61 Year
  Sex: Female
  Weight: 70 kg

DRUGS (7)
  1. PROPOFOL (PROPOFOL) [Suspect]
     Active Substance: PROPOFOL
     Indication: INDUCTION OF ANAESTHESIA
     Dates: start: 20120312, end: 20120312
  2. EPINEPHRINE. [Concomitant]
     Active Substance: EPINEPHRINE
  3. ATROPINE [Concomitant]
     Active Substance: ATROPINE
  4. SUFENTANIL (SUFENTANIL) (UNKNOWN) (SUFENTANIL) [Suspect]
     Active Substance: SUFENTANIL
     Indication: INDUCTION OF ANAESTHESIA
     Dates: start: 20120312, end: 20120312
  5. ATRACURIUM (ATRACURIUM) [Suspect]
     Active Substance: ATRACURIUM
     Indication: INDUCTION OF ANAESTHESIA
     Route: 042
     Dates: start: 20120312, end: 20120312
  6. MIDAZOLAM [Suspect]
     Active Substance: MIDAZOLAM\MIDAZOLAM HYDROCHLORIDE
     Indication: ANAESTHETIC PREMEDICATION
     Route: 048
     Dates: start: 20120312, end: 20120312
  7. LORAZEPAM (LORAZEPAM) (UNKNOWN) (LORAZEPAM) [Suspect]
     Active Substance: LORAZEPAM
     Indication: ANAESTHETIC PREMEDICATION
     Dosage: 1 MG, AT THE EVENING
     Route: 048
     Dates: start: 20130224, end: 20130224

REACTIONS (14)
  - Abscess [None]
  - Treatment failure [None]
  - Secretion discharge [None]
  - Procedural site reaction [None]
  - Ventricular fibrillation [None]
  - Ventricular hypokinesia [None]
  - Electrocardiogram ST segment elevation [None]
  - Bradycardia [None]
  - Hypotension [None]
  - Post procedural complication [None]
  - Pulseless electrical activity [None]
  - Acute myocardial infarction [None]
  - Stress cardiomyopathy [None]
  - Anaesthetic complication [None]

NARRATIVE: CASE EVENT DATE: 20120312
